FAERS Safety Report 4768073-4 (Version None)
Quarter: 2005Q3

REPORT INFORMATION
  Report Type: 
  Country: None (occurrence: None)
  Receive Date: 20050906
  Receipt Date: 20050519
  Transmission Date: 20060218
  Serious: No
  Sender: FDA-Public Use
  Company Number: 2005-BP-08320BP

PATIENT
  Age: 80 Year
  Sex: Female

DRUGS (1)
  1. SPIRIVA [Suspect]
     Indication: CHRONIC OBSTRUCTIVE PULMONARY DISEASE
     Dosage: 18 MCG (18 MCG, QD) IH
     Route: 055
     Dates: start: 20050401

REACTIONS (2)
  - CHAPPED LIPS [None]
  - DRY MOUTH [None]
